FAERS Safety Report 12921364 (Version 2)
Quarter: 2016Q4

REPORT INFORMATION
  Report Type: Spontaneous
  Country: CA (occurrence: CA)
  Receive Date: 20161108
  Receipt Date: 20161212
  Transmission Date: 20170207
  Serious: Yes (Other)
  Sender: FDA-Public Use
  Company Number: CA-GLAXOSMITHKLINE-CA2016GSK161942

PATIENT
  Age: 55 Year
  Sex: Male

DRUGS (1)
  1. INCRUSE ELLIPTA [Suspect]
     Active Substance: UMECLIDINIUM BROMIDE
     Indication: CHRONIC OBSTRUCTIVE PULMONARY DISEASE
     Dosage: UNK
     Dates: start: 201609, end: 201609

REACTIONS (3)
  - Urinary retention [Recovered/Resolved]
  - Prostatic specific antigen increased [Recovered/Resolved]
  - Prostatitis [Unknown]

NARRATIVE: CASE EVENT DATE: 201609
